FAERS Safety Report 5026689-4 (Version None)
Quarter: 2006Q2

REPORT INFORMATION
  Report Type: 
  Country: None (occurrence: None)
  Receive Date: 20060615
  Receipt Date: 20060606
  Transmission Date: 20061013
  Serious: Yes (Hospitalization)
  Sender: FDA-Public Use
  Company Number: US-JNJFOC-20060400553

PATIENT
  Sex: Male
  Weight: 54.43 kg

DRUGS (6)
  1. CONCERTA [Suspect]
     Indication: PSYCHOMOTOR HYPERACTIVITY
     Dosage: DOSE RANGE FROM 54 MG TO 72 MG DAILY
     Route: 048
  2. GUAIFENESIN [Concomitant]
  3. LAMICTAL [Concomitant]
  4. SEROQUEL [Concomitant]
     Indication: AGGRESSION
     Route: 048
  5. SEROQUEL [Concomitant]
     Indication: AGITATION
     Route: 048
  6. DESMOPRESSIN [Concomitant]
     Indication: ENURESIS
     Route: 048

REACTIONS (2)
  - HYPERTENSION [None]
  - VOMITING [None]
